FAERS Safety Report 22387994 (Version 1)
Quarter: 2023Q2

REPORT INFORMATION
  Report Type: Other
  Country: GR (occurrence: None)
  Receive Date: 20230531
  Receipt Date: 20230531
  Transmission Date: 20230722
  Serious: Yes (Death, Other)
  Sender: FDA-Public Use
  Company Number: GR-AMGEN-GRCSP2023084764

PATIENT
  Age: 65 Year
  Sex: Female

DRUGS (2)
  1. BEVACIZUMAB [Suspect]
     Active Substance: BEVACIZUMAB
     Indication: Metastatic ocular melanoma
     Route: 065
     Dates: start: 2021
  2. PACLITAXEL [Concomitant]
     Active Substance: PACLITAXEL
     Indication: Metastatic ocular melanoma
     Dates: start: 2021

REACTIONS (4)
  - General physical health deterioration [Unknown]
  - Off label use [Unknown]
  - Metastatic ocular melanoma [Unknown]
  - Death [Fatal]

NARRATIVE: CASE EVENT DATE: 20210101
